FAERS Safety Report 17880189 (Version 1)
Quarter: 2020Q2

REPORT INFORMATION
  Report Type: Spontaneous
  Country: CA (occurrence: CA)
  Receive Date: 20200610
  Receipt Date: 20200610
  Transmission Date: 20200714
  Serious: Yes (Death)
  Sender: FDA-Public Use
  Company Number: CA-ACCORD-184649

PATIENT
  Age: 84 Year
  Sex: Female
  Weight: 78.47 kg

DRUGS (20)
  1. CITALOPRAM [Concomitant]
     Active Substance: CITALOPRAM HYDROBROMIDE
  2. LACTULOSE. [Concomitant]
     Active Substance: LACTULOSE
  3. AMLODIPINE [Concomitant]
     Active Substance: AMLODIPINE BESYLATE
  4. STATEX [Concomitant]
  5. IRBESARTAN. [Concomitant]
     Active Substance: IRBESARTAN
  6. GLYCINE MAX [Concomitant]
  7. PARACETAMOL [Concomitant]
     Active Substance: ACETAMINOPHEN
  8. ZINC. [Concomitant]
     Active Substance: ZINC
     Dosage: STRENGTH: 0.5%
  9. FUROSEMIDE. [Concomitant]
     Active Substance: FUROSEMIDE
  10. IRON [Concomitant]
     Active Substance: IRON
  11. SALBUTAMOL [Concomitant]
     Active Substance: ALBUTEROL
  12. DIPHENHYDRAMINE. [Concomitant]
     Active Substance: DIPHENHYDRAMINE
  13. ERGOCALCIFEROL. [Concomitant]
     Active Substance: ERGOCALCIFEROL
  14. CLOTRIMAZOLE/HYDROCORTISONE [Concomitant]
     Active Substance: CLOTRIMAZOLE\HYDROCORTISONE
  15. ACETYLSALICYLIC ACID [Concomitant]
     Active Substance: ASPIRIN
  16. LEVETIRACETAM. [Suspect]
     Active Substance: LEVETIRACETAM
     Indication: SEIZURE
     Dosage: 2 EVERY 1 DAYS
     Route: 048
  17. SENNA ALEXANDRINA [Concomitant]
     Active Substance: SENNA LEAF
  18. SPIRIVA RESPIMAT [Concomitant]
     Active Substance: TIOTROPIUM BROMIDE
     Dosage: SOLUTION INHALATION
  19. VOLTAREN [Concomitant]
     Active Substance: DICLOFENAC SODIUM
  20. RATIO-ECTOSONE [Concomitant]
     Active Substance: BETAMETHASONE VALERATE

REACTIONS (6)
  - Skin erosion [Fatal]
  - Blister [Fatal]
  - Cerebrovascular accident [Fatal]
  - Wound infection [Fatal]
  - Pain [Fatal]
  - Blister rupture [Fatal]
